FAERS Safety Report 7189963-1 (Version None)
Quarter: 2010Q4

REPORT INFORMATION
  Report Type: 
  Country: None (occurrence: None)
  Receive Date: 20101223
  Receipt Date: 20101217
  Transmission Date: 20110411
  Serious: Yes (Hospitalization)
  Sender: FDA-Public Use
  Company Number: US-US-EMD SERONO, INC.-7032744

PATIENT
  Sex: Male

DRUGS (11)
  1. REBIF [Suspect]
     Indication: MULTIPLE SCLEROSIS
     Route: 058
     Dates: start: 20101122, end: 20100101
  2. REBIF [Suspect]
     Route: 058
     Dates: start: 20101201
  3. INSULIN [Concomitant]
  4. CATAPRES [Concomitant]
  5. DEPAKOTE [Concomitant]
  6. PROCARDIA [Concomitant]
  7. LOPID [Concomitant]
  8. COREG [Concomitant]
  9. ROBAXIN [Concomitant]
  10. LASIX [Concomitant]
  11. POTASSIUM [Concomitant]

REACTIONS (8)
  - BLOOD GLUCOSE INCREASED [None]
  - FATIGUE [None]
  - GAIT DISTURBANCE [None]
  - INFLUENZA [None]
  - INFLUENZA LIKE ILLNESS [None]
  - MULTIPLE SCLEROSIS RELAPSE [None]
  - PNEUMONIA [None]
  - VACCINATION COMPLICATION [None]
